FAERS Safety Report 8796763 (Version 1)
Quarter: 2012Q4

REPORT INFORMATION
  Report Type: 
  Country: US (occurrence: US)
  Receive Date: 20120919
  Receipt Date: 20120919
  Transmission Date: 20130627
  Serious: Yes (Hospitalization, Other)
  Sender: FDA-Public Use
  Company Number: US-009507513-1204USA02201

PATIENT

DRUGS (7)
  1. FOSAMAX [Suspect]
     Indication: OSTEOPOROSIS
     Route: 048
     Dates: start: 2000, end: 2009
  2. FOSAMAX [Suspect]
     Indication: BONE LOSS
  3. FOSAMAX [Suspect]
     Indication: OSTEOPOROSIS
     Route: 048
  4. FOSAMAX [Suspect]
     Indication: BONE LOSS
  5. VITAMINS (UNSPECIFIED) [Concomitant]
     Dosage: UNK IU, UNK
     Route: 048
     Dates: start: 2000
  6. CALCIUM (UNSPECIFIED) [Concomitant]
     Dosage: 1000 UNK, UNK
     Dates: start: 2000
  7. VITAMIN D (UNSPECIFIED) [Concomitant]
     Dosage: 1000 UNK, UNK
     Dates: start: 2000

REACTIONS (21)
  - Open reduction of fracture [Unknown]
  - Open reduction of fracture [Unknown]
  - Femur fracture [Recovering/Resolving]
  - Femur fracture [Unknown]
  - Nasal septum deviation [Unknown]
  - Sinus operation [Unknown]
  - Low turnover osteopathy [Unknown]
  - Bursitis [Unknown]
  - Ankle fracture [Unknown]
  - Migraine [Not Recovered/Not Resolved]
  - Contusion [Unknown]
  - Hypersensitivity [Not Recovered/Not Resolved]
  - Tendon calcification [Unknown]
  - Fall [Unknown]
  - Joint injury [Unknown]
  - Rotator cuff syndrome [Not Recovered/Not Resolved]
  - Fall [Unknown]
  - Wrist fracture [Unknown]
  - Muscular weakness [Unknown]
  - Depression [Unknown]
  - Anxiety [Unknown]
